FAERS Safety Report 24729309 (Version 4)
Quarter: 2025Q1

REPORT INFORMATION
  Report Type: Report from Study
  Country: ES (occurrence: ES)
  Receive Date: 20241213
  Receipt Date: 20250322
  Transmission Date: 20250408
  Serious: Yes (Life-Threatening, Hospitalization, Other)
  Sender: ABBVIE
  Company Number: ES-ABBVIE-6040696

PATIENT
  Age: 70 Year
  Sex: Male

DRUGS (5)
  1. HUMIRA [Suspect]
     Active Substance: ADALIMUMAB
     Indication: Colitis ulcerative
     Route: 058
     Dates: start: 20130723, end: 20240127
  2. ACETAMINOPHEN [Concomitant]
     Active Substance: ACETAMINOPHEN
     Indication: Colitis ulcerative
     Route: 048
     Dates: start: 20141230, end: 20240201
  3. CALCIFEDIOL [Concomitant]
     Active Substance: CALCIFEDIOL
     Indication: Colitis ulcerative
     Route: 048
     Dates: start: 20140610, end: 20240201
  4. METFORMIN [Concomitant]
     Active Substance: METFORMIN HYDROCHLORIDE
     Indication: Diabetes mellitus
     Route: 048
     Dates: start: 20140507, end: 20240201
  5. MAXIDEX [Concomitant]
     Active Substance: DEXAMETHASONE
     Indication: Episcleritis
     Route: 047
     Dates: start: 20140930, end: 20240201

REACTIONS (3)
  - Postinfarction angina [Recovered/Resolved]
  - Lacunar stroke [Recovered/Resolved]
  - Coronary artery occlusion [Recovered/Resolved]

NARRATIVE: CASE EVENT DATE: 20210903
